FAERS Safety Report 14957774 (Version 2)
Quarter: 2018Q2

REPORT INFORMATION
  Report Type: Spontaneous
  Country: US (occurrence: US)
  Receive Date: 20180531
  Receipt Date: 20180619
  Transmission Date: 20180711
  Serious: No
  Sender: FDA-Public Use
  Company Number: US-SA-2018SA145724

PATIENT
  Age: 20 Year
  Sex: Male

DRUGS (1)
  1. CERDELGA [Suspect]
     Active Substance: ELIGLUSTAT
     Indication: GAUCHER^S DISEASE
     Dosage: UNK, BID
     Route: 048
     Dates: start: 20180503

REACTIONS (3)
  - Pain [Unknown]
  - Vomiting [Unknown]
  - Nausea [Unknown]
